FAERS Safety Report 10410060 (Version 1)
Quarter: 2014Q3

REPORT INFORMATION
  Report Type: Spontaneous
  Country: US (occurrence: None)
  Receive Date: 20140703
  Receipt Date: 20140703
  Transmission Date: 20150326
  Serious: Yes (Life-Threatening, Hospitalization, Other)
  Sender: FDA-Public Use
  Company Number: AUR-APL-2014-06161

PATIENT
  Age: 17 Year
  Sex: Male

DRUGS (4)
  1. DIVALPROEX (VALPROATE) UNKNOWN, UNKNOWN [Suspect]
     Active Substance: DIVALPROEX SODIUM
     Indication: PRODUCT USED FOR UNKNOWN INDICATION
  2. OLANZAPINE (OLANZAPINE) [Suspect]
     Active Substance: OLANZAPINE
     Indication: PRODUCT USED FOR UNKNOWN INDICATION
  3. GUANFACINE (GUANFACINE) [Suspect]
     Active Substance: GUANFACINE
     Indication: PRODUCT USED FOR UNKNOWN INDICATION
  4. IMIPRAMINE (IMIPRAMINE) (IMIPRAMINE) [Suspect]
     Active Substance: IMIPRAMINE
     Indication: PRODUCT USED FOR UNKNOWN INDICATION

REACTIONS (8)
  - Intracranial pressure increased [None]
  - Hypertension [None]
  - Hyperammonaemia [None]
  - Brain oedema [None]
  - Neurotoxicity [None]
  - Haemodialysis [None]
  - Overdose [None]
  - Pneumonia [None]
